FAERS Safety Report 4896506-1 (Version None)
Quarter: 2006Q1

REPORT INFORMATION
  Report Type: 
  Country: None (occurrence: None)
  Receive Date: 20060131
  Receipt Date: 20060127
  Transmission Date: 20060701
  Serious: Yes (Hospitalization)
  Sender: FDA-Public Use
  Company Number: US-GLAXOSMITHKLINE-A0591274A

PATIENT
  Age: 75 Year
  Sex: Male

DRUGS (5)
  1. ZOFRAN [Suspect]
     Indication: PROPHYLAXIS OF NAUSEA AND VOMITING
     Dosage: 4MG AS REQUIRED
     Route: 048
     Dates: start: 20051229, end: 20051201
  2. TOPROL-XL [Concomitant]
  3. VITAMIN [Concomitant]
  4. B-12 VITAMIN [Concomitant]
  5. ALIMTA [Concomitant]

REACTIONS (3)
  - DRUG INEFFECTIVE [None]
  - FOREIGN BODY ASPIRATION [None]
  - PNEUMONIA ASPIRATION [None]
